FAERS Safety Report 7935633-9 (Version None)
Quarter: 2011Q4

REPORT INFORMATION
  Report Type: 
  Country: None (occurrence: None)
  Receive Date: 20111123
  Receipt Date: 20111117
  Transmission Date: 20120403
  Serious: Yes (Death, Hospitalization)
  Sender: FDA-Public Use
  Company Number: US-ELI_LILLY_AND_COMPANY-US201111005863

PATIENT
  Sex: Female

DRUGS (3)
  1. HUMALOG [Suspect]
     Dosage: 20 U, AT LUNCH TIME
  2. HUMALOG [Suspect]
     Indication: DIABETES MELLITUS
     Dosage: 35 U, EACH MORNING
  3. HUMALOG [Suspect]
     Dosage: 5 U, EACH EVENING

REACTIONS (2)
  - RENAL DISORDER [None]
  - MYOCARDIAL INFARCTION [None]
